FAERS Safety Report 15865310 (Version 2)
Quarter: 2019Q1

REPORT INFORMATION
  Report Type: Spontaneous
  Country: KR (occurrence: KR)
  Receive Date: 20190124
  Receipt Date: 20190213
  Transmission Date: 20190417
  Serious: Yes (Hospitalization)
  Sender: FDA-Public Use
  Company Number: KR-009507513-1901KOR007985

PATIENT
  Sex: Male

DRUGS (21)
  1. KEYTRUDA [Suspect]
     Active Substance: PEMBROLIZUMAB
     Indication: METASTASES TO BONE
  2. ANAMINE [Concomitant]
     Dosage: QUANTITY 1, DAYS 4
     Dates: start: 20190111, end: 20190114
  3. SODIUM CHLORIDE. [Concomitant]
     Active Substance: SODIUM CHLORIDE
     Dosage: 100 MILLILITER, QUANTITY 1, DAYS 1
     Dates: start: 20190111
  4. SODIUM CHLORIDE. [Concomitant]
     Active Substance: SODIUM CHLORIDE
     Dosage: 50 MILLILITER, QUALITY 2, DAYS 1
     Dates: start: 20190110
  5. KEYTRUDA [Suspect]
     Active Substance: PEMBROLIZUMAB
     Indication: METASTASES TO LIVER
     Dosage: QUANTITY 2, DAYS 1
     Dates: start: 20190130
  6. DENOGAN [Concomitant]
     Active Substance: PROPACETAMOL HYDROCHLORIDE
     Dosage: QUANTITY 1, DAYS 2
     Dates: start: 20190109, end: 20190111
  7. BC MORPHINE SULFATE [Concomitant]
     Dosage: QUANTITY 1, DAYS 1
     Dates: start: 20190110
  8. KEYTRUDA [Suspect]
     Active Substance: PEMBROLIZUMAB
     Indication: CONDITION AGGRAVATED
  9. PENIRAMIN [Concomitant]
     Dosage: QUANTITY 1, DAYS 1
     Dates: start: 20190110
  10. SODIUM CHLORIDE. [Concomitant]
     Active Substance: SODIUM CHLORIDE
     Dosage: QUANTITY 1, DAYS 2
     Dates: start: 20190113, end: 20190114
  11. SODIUM CHLORIDE. [Concomitant]
     Active Substance: SODIUM CHLORIDE
     Dosage: QUANTITY 4, DAYS 1
     Dates: start: 20190112
  12. SODIUM CHLORIDE. [Concomitant]
     Active Substance: SODIUM CHLORIDE
     Dosage: QUANTITY 1, DAYS 4
     Dates: start: 20190111, end: 20190114
  13. SODIUM CHLORIDE. [Concomitant]
     Active Substance: SODIUM CHLORIDE
     Dosage: 100 MILLILITER, QUANTITY 2, DAYS 2
     Dates: start: 20190109, end: 20190110
  14. SODIUM CHLORIDE. [Concomitant]
     Active Substance: SODIUM CHLORIDE
     Dosage: 500 MILLILITER,  QUANTITY 2, DAYS 1
     Dates: start: 20190110
  15. MEPERIDINE HYDROCHLORIDE. [Concomitant]
     Active Substance: MEPERIDINE HYDROCHLORIDE
     Dosage: STRENGTH:  25MG/0.5ML. QUANTITY 2, DAYS 1
     Dates: start: 20190109
  16. TABAXIN [Concomitant]
     Active Substance: PIPERACILLIN SODIUM\TAZOBACTAM SODIUM
     Dosage: QUANTITY 1, DAYS 1
     Dates: start: 20190111
  17. KEYTRUDA [Suspect]
     Active Substance: PEMBROLIZUMAB
     Indication: NASOPHARYNGEAL CANCER
     Dosage: QUANTITY 2, DAYS 1
     Dates: start: 20190110
  18. SODIUM CHLORIDE. [Concomitant]
     Active Substance: SODIUM CHLORIDE
     Dosage: 100 MILLIGRAM, QUANTITY 1, DAYS 2
     Dates: start: 20190109, end: 20190111
  19. KEYTRUDA [Suspect]
     Active Substance: PEMBROLIZUMAB
     Indication: METASTASES TO LYMPH NODES
  20. KEYTRUDA [Suspect]
     Active Substance: PEMBROLIZUMAB
     Indication: PALLIATIVE CARE
  21. GLUCUROLACTONE [Concomitant]
     Active Substance: GLUCUROLACTONE
     Dosage: DOSE: 1000 MILILITER,  QUANTITY 1, DAYS 1
     Dates: start: 20190109

REACTIONS (2)
  - Adverse event [Unknown]
  - Product use in unapproved indication [Unknown]

NARRATIVE: CASE EVENT DATE: 201901
